FAERS Safety Report 8498430-4 (Version None)
Quarter: 2012Q3

REPORT INFORMATION
  Report Type: 
  Country: None (occurrence: None)
  Receive Date: 20120709
  Receipt Date: 20120704
  Transmission Date: 20120928
  Serious: Yes (Hospitalization)
  Sender: FDA-Public Use
  Company Number: CA-ROCHE-1085057

PATIENT
  Sex: Female
  Weight: 68.1 kg

DRUGS (10)
  1. CALCIUM [Concomitant]
     Route: 065
  2. TRAMADOL HYDROCHLORIDE/ACETAMINOPHEN [Concomitant]
     Route: 065
  3. ALDACTONE [Concomitant]
     Route: 065
  4. VITAMIN D [Concomitant]
     Route: 065
  5. MABTHERA [Suspect]
     Indication: SJOGREN'S SYNDROME
     Dosage: DAY 1 AND DAY 15
     Route: 042
     Dates: start: 20101213, end: 20111026
  6. FOLIC ACID [Concomitant]
     Route: 065
  7. FUROSEMIDE [Concomitant]
     Route: 065
  8. ALENDRONATE SODIUM [Concomitant]
     Route: 065
  9. PREDNISONE [Concomitant]
     Route: 065
  10. LOPERAMIDE [Concomitant]
     Route: 065

REACTIONS (1)
  - BLOOD URINE PRESENT [None]
